FAERS Safety Report 8819023 (Version 3)
Quarter: 2014Q2

REPORT INFORMATION
  Report Type: Report from Study
  Country: JP (occurrence: JP)
  Receive Date: 20121001
  Receipt Date: 20140601
  Transmission Date: 20141212
  Serious: Yes (Death, Hospitalization)
  Sender: FDA-Public Use
  Company Number: JP-VERTEX PHARMACEUTICAL INC.-AE-2012-003675

PATIENT
  Age: 64 Year
  Sex: Male

DRUGS (11)
  1. VX-950 (TELAPREVIR) [Suspect]
     Indication: CHRONIC HEPATITIS C
     Dosage: 2250 MG, QD
     Route: 048
     Dates: start: 20120306, end: 20120311
  2. RIBAVIRIN [Concomitant]
     Dosage: 800 MG, QD
     Route: 048
     Dates: start: 20120306, end: 20120311
  3. PEGINTRON [Concomitant]
     Dosage: 1.5 UNK, UNK
     Route: 058
     Dates: start: 20120306, end: 20120306
  4. NEXIUM [Concomitant]
     Route: 048
     Dates: start: 20120306, end: 20120312
  5. TALION [Concomitant]
     Route: 048
     Dates: start: 20120306, end: 20120312
  6. URSO [Concomitant]
     Route: 048
     Dates: end: 20120311
  7. PROMAC [Concomitant]
     Route: 048
     Dates: start: 200301, end: 20120312
  8. MAGMITT [Concomitant]
     Route: 048
     Dates: end: 20120312
  9. PORTOLAC [Concomitant]
     Route: 048
     Dates: start: 200911, end: 20120312
  10. AMARYL [Concomitant]
     Route: 048
     Dates: start: 200704, end: 20120311
  11. ACTOS [Concomitant]
     Route: 048
     Dates: start: 200805, end: 20120311

REACTIONS (2)
  - Liver disorder [Fatal]
  - Renal disorder [Not Recovered/Not Resolved]
